FAERS Safety Report 10113482 (Version 1)
Quarter: 2014Q2

REPORT INFORMATION
  Report Type: Spontaneous
  Country: US (occurrence: US)
  Receive Date: 20140425
  Receipt Date: 20140425
  Transmission Date: 20141212
  Serious: Yes (Other)
  Sender: FDA-Public Use
  Company Number: US-BAYER-2014-059133

PATIENT
  Age: 19 Year
  Sex: Female

DRUGS (5)
  1. YAZ [Suspect]
  2. MINOCYCLINE [Concomitant]
     Dosage: 100 MG, UNK
     Dates: start: 20090107, end: 20101202
  3. TAZORAC [Concomitant]
     Dosage: 0.05 %, UNK
     Dates: start: 20100201
  4. AZITHROMYCIN [Concomitant]
     Dosage: 250 MG, UNK
     Dates: start: 20100203
  5. VENTOLIN [Concomitant]
     Dosage: UNK
     Dates: start: 20100429

REACTIONS (1)
  - Thrombophlebitis superficial [None]
